FAERS Safety Report 23717407 (Version 7)
Quarter: 2025Q3

REPORT INFORMATION
  Report Type: Spontaneous
  Country: EU (occurrence: EU)
  Receive Date: 20240408
  Receipt Date: 20250808
  Transmission Date: 20251021
  Serious: Yes (Other)
  Sender: CELLTRION
  Company Number: EU-CELLTRION INC.-2024IT008199

PATIENT

DRUGS (28)
  1. TRASTUZUMAB [Suspect]
     Active Substance: TRASTUZUMAB
     Indication: Triple positive breast cancer
     Route: 065
     Dates: start: 2020
  2. TRASTUZUMAB [Suspect]
     Active Substance: TRASTUZUMAB
     Indication: Invasive ductal breast carcinoma
     Route: 065
  3. TRASTUZUMAB [Suspect]
     Active Substance: TRASTUZUMAB
     Indication: Metastases to lymph nodes
     Route: 065
  4. TRASTUZUMAB [Suspect]
     Active Substance: TRASTUZUMAB
     Indication: HER2 positive breast cancer
     Dates: start: 2020
  5. TRASTUZUMAB [Suspect]
     Active Substance: TRASTUZUMAB
     Indication: Metastases to central nervous system
     Dates: start: 2020
  6. TRASTUZUMAB [Suspect]
     Active Substance: TRASTUZUMAB
     Indication: Human epidermal growth factor receptor positive
  7. TRASTUZUMAB [Suspect]
     Active Substance: TRASTUZUMAB
     Indication: Breast cancer
     Route: 065
  8. TRASTUZUMAB [Suspect]
     Active Substance: TRASTUZUMAB
     Indication: Invasive ductal breast carcinoma
  9. PACLITAXEL [Suspect]
     Active Substance: PACLITAXEL
     Indication: Triple positive breast cancer
     Route: 065
     Dates: start: 2020
  10. PACLITAXEL [Suspect]
     Active Substance: PACLITAXEL
     Indication: HER2 positive breast cancer
     Route: 065
  11. PACLITAXEL [Suspect]
     Active Substance: PACLITAXEL
     Indication: Invasive ductal breast carcinoma
     Route: 065
  12. PACLITAXEL [Suspect]
     Active Substance: PACLITAXEL
     Indication: Breast cancer
  13. VINORELBINE [Suspect]
     Active Substance: VINORELBINE TARTRATE
     Indication: Invasive ductal breast carcinoma
     Route: 065
  14. LAPATINIB [Concomitant]
     Active Substance: LAPATINIB
     Indication: Lymphadenopathy
     Route: 065
  15. LAPATINIB [Concomitant]
     Active Substance: LAPATINIB
     Indication: Chemotherapy
  16. LETROZOLE [Concomitant]
     Active Substance: LETROZOLE
  17. CAPECITABINE [Concomitant]
     Active Substance: CAPECITABINE
     Indication: Lymphadenopathy
     Route: 065
  18. CAPECITABINE [Concomitant]
     Active Substance: CAPECITABINE
     Indication: Chemotherapy
  19. FULVESTRANT [Concomitant]
     Active Substance: FULVESTRANT
  20. VINORELBINE [Concomitant]
     Active Substance: VINORELBINE TARTRATE
     Indication: HER2 positive breast cancer
     Route: 065
  21. VINORELBINE [Concomitant]
     Active Substance: VINORELBINE TARTRATE
     Indication: Chemotherapy
  22. DOCETAXEL [Concomitant]
     Active Substance: DOCETAXEL
     Indication: HER2 positive breast cancer
     Route: 065
  23. PACLITAXEL [Concomitant]
     Active Substance: PACLITAXEL
     Indication: Metastases to central nervous system
     Dates: start: 2020
  24. PACLITAXEL [Concomitant]
     Active Substance: PACLITAXEL
     Indication: Invasive ductal breast carcinoma
  25. PACLITAXEL [Concomitant]
     Active Substance: PACLITAXEL
     Indication: Metastases to lymph nodes
  26. PACLITAXEL [Concomitant]
     Active Substance: PACLITAXEL
     Indication: Triple positive breast cancer
  27. TRASTUZUMAB EMTANSINE [Concomitant]
     Active Substance: TRASTUZUMAB EMTANSINE
     Route: 065
  28. ADO-TRASTUZUMAB EMTANSINE [Concomitant]
     Active Substance: ADO-TRASTUZUMAB EMTANSINE

REACTIONS (4)
  - Breast cancer metastatic [Unknown]
  - Cardiotoxicity [Unknown]
  - Systolic dysfunction [Not Recovered/Not Resolved]
  - Ejection fraction decreased [Not Recovered/Not Resolved]

NARRATIVE: CASE EVENT DATE: 20200101
